FAERS Safety Report 19142700 (Version 1)
Quarter: 2021Q2

REPORT INFORMATION
  Report Type: Spontaneous
  Country: NO (occurrence: NO)
  Receive Date: 20210415
  Receipt Date: 20210415
  Transmission Date: 20210717
  Serious: Yes (Death)
  Sender: FDA-Public Use
  Company Number: NO-009507513-2104NOR002377

PATIENT
  Age: 5 Month
  Sex: Male

DRUGS (19)
  1. CARBOPLATIN ACCORD [Suspect]
     Active Substance: CARBOPLATIN
     Indication: SQUAMOUS CELL CARCINOMA OF LUNG
     Dosage: 588.75, STRENGTH: 10 MG/ML, FORMULATION: CONCENTRATE FOR INFUSION
     Route: 042
     Dates: start: 20210303, end: 20210325
  2. SOMAC [Concomitant]
     Active Substance: PANTOPRAZOLE SODIUM
     Indication: GASTROOESOPHAGEAL REFLUX DISEASE
     Dosage: 20 MILLIGRAM, QD
     Route: 048
     Dates: start: 20000101, end: 20210325
  3. LIPITOR [Concomitant]
     Active Substance: ATORVASTATIN CALCIUM
     Indication: HYPERCHOLESTEROLAEMIA
     Dosage: 80 MILLIGRAM, QD
     Route: 048
     Dates: start: 20000101, end: 20210325
  4. CITALOPRAM [Concomitant]
     Active Substance: CITALOPRAM HYDROBROMIDE
     Indication: DEPRESSION
     Dosage: 10 MILLIGRAM, QD
     Route: 048
     Dates: start: 20000101, end: 20210325
  5. ELIQUIS [Concomitant]
     Active Substance: APIXABAN
     Indication: ATRIAL FIBRILLATION
     Dosage: 5 MILLIGRAM, Q12H
     Route: 048
     Dates: start: 20000101, end: 20210325
  6. TARGIN [Concomitant]
     Active Substance: NALOXONE HYDROCHLORIDE\OXYCODONE HYDROCHLORIDE
     Indication: PAIN
     Dosage: 1 DOSAGE FORM, Q12H
     Route: 048
     Dates: start: 20210324, end: 20210325
  7. FURIX [Concomitant]
     Indication: CARDIAC FAILURE
     Dosage: 60 MG + 40  MG
     Route: 048
     Dates: start: 20000101, end: 20210325
  8. PARACET [PARACETAMOL] [Concomitant]
     Active Substance: ACETAMINOPHEN
     Indication: PAIN
     Dosage: 1 GRAM, Q6H
     Route: 048
     Dates: start: 20210301, end: 20210325
  9. PACLITAXEL. [Suspect]
     Active Substance: PACLITAXEL
     Indication: SQUAMOUS CELL CARCINOMA OF LUNG
     Dosage: STRENGTH: 6 MG/ML
  10. DUPHALAC [Concomitant]
     Active Substance: LACTULOSE
     Indication: CONSTIPATION
     Dosage: STRENGTH: 667, 15 ML, Q12H
     Route: 048
     Dates: start: 20190201, end: 20210325
  11. FERROMAX (FERROUS SULFATE) [Concomitant]
     Indication: IRON DEFICIENCY ANAEMIA
     Dosage: 65 MILLIGRAM, Q12H
     Route: 048
     Dates: start: 20000101, end: 20210325
  12. PEMBROLIZUMAB. [Suspect]
     Active Substance: PEMBROLIZUMAB
     Indication: SQUAMOUS CELL CARCINOMA OF LUNG
     Dosage: 200 MILLIGRAM
     Route: 041
     Dates: start: 20190201, end: 20210326
  13. NYCOPLUS FOLSYRE [Concomitant]
     Indication: ANAEMIA
     Dosage: 400 MICROGRAM, QD
     Route: 048
     Dates: start: 20200101, end: 20210325
  14. ENALAPRIL KRKA [Concomitant]
     Active Substance: ENALAPRIL MALEATE
     Indication: HYPERTENSION
     Route: 048
     Dates: start: 20000101, end: 20210325
  15. LYRICA [Concomitant]
     Active Substance: PREGABALIN
     Indication: PAIN
     Dosage: 300 MILLIGRAM, Q8H
     Route: 048
     Dates: start: 20210225, end: 20210325
  16. PACLITAXEL. [Suspect]
     Active Substance: PACLITAXEL
     Dosage: 300 MG Q3W, FORMULATION: CONCENTRATE FOR INFUSION
     Route: 042
     Dates: start: 20210303, end: 20210325
  17. LEVAXIN [Concomitant]
     Active Substance: LEVOTHYROXINE SODIUM
     Indication: HYPOTHYROIDISM
     Dosage: 100 MICROGRAM ON TUESDAY, THURSDAY, SATURDAY AND SUNDAY. 200 MICROGRAM MONDEY, WEDNESDAY AND FRIDAY.
     Route: 048
     Dates: start: 20190201, end: 20210225
  18. FINASTERIDE. [Concomitant]
     Active Substance: FINASTERIDE
     Indication: BENIGN PROSTATIC HYPERPLASIA
     Dosage: 5 MILLIGRAM, QD
     Route: 048
     Dates: start: 20000101, end: 20210325
  19. ANORO ELLIPTA [Concomitant]
     Active Substance: UMECLIDINIUM BROMIDE\VILANTEROL TRIFENATATE
     Indication: CHRONIC OBSTRUCTIVE PULMONARY DISEASE
     Dosage: 2 DOSAGES FORMS IN THE MORNING.
     Route: 055
     Dates: start: 20180101, end: 20210325

REACTIONS (1)
  - Death [Fatal]

NARRATIVE: CASE EVENT DATE: 20210325
